FAERS Safety Report 5579899-1 (Version None)
Quarter: 2008Q1

REPORT INFORMATION
  Report Type: 
  Country: None (occurrence: None)
  Receive Date: 20080103
  Receipt Date: 20071227
  Transmission Date: 20080703
  Serious: Yes (Other)
  Sender: FDA-Public Use
  Company Number: US-JNJFOC-20071205770

PATIENT
  Sex: Male
  Weight: 36.29 kg

DRUGS (2)
  1. REMICADE [Suspect]
     Indication: COLITIS ULCERATIVE
     Route: 042
  2. REMICADE [Suspect]
     Indication: CROHN'S DISEASE
     Route: 042

REACTIONS (11)
  - AEROMONA INFECTION [None]
  - CLOSTRIDIAL INFECTION [None]
  - DYSKINESIA [None]
  - INFLUENZA LIKE ILLNESS [None]
  - INFUSION RELATED REACTION [None]
  - OBSESSIVE-COMPULSIVE DISORDER [None]
  - RECTAL FISSURE [None]
  - RESTLESS LEGS SYNDROME [None]
  - SALMONELLOSIS [None]
  - TRANSFUSION [None]
  - URTICARIA [None]
